FAERS Safety Report 13915904 (Version 3)
Quarter: 2021Q1

REPORT INFORMATION
  Report Type: Other
  Country: IN (occurrence: IN)
  Receive Date: 20170829
  Receipt Date: 20210309
  Transmission Date: 20210419
  Serious: Yes (Other)
  Sender: FDA-Public Use
  Company Number: IN-ROCHE-1983831

PATIENT
  Sex: Female

DRUGS (2)
  1. CISPLATIN. [Suspect]
     Active Substance: CISPLATIN
     Indication: CERVIX CARCINOMA
     Route: 042
  2. CAPECITABINE. [Suspect]
     Active Substance: CAPECITABINE
     Indication: CERVIX CARCINOMA
     Dosage: 460 MG/KG/M2
     Route: 048

REACTIONS (3)
  - Neutropenia [Unknown]
  - Anaemia [Unknown]
  - Diarrhoea [Unknown]
